FAERS Safety Report 22854144 (Version 2)
Quarter: 2023Q4

REPORT INFORMATION
  Report Type: Spontaneous
  Country: US (occurrence: US)
  Receive Date: 20230823
  Receipt Date: 20231019
  Transmission Date: 20240110
  Serious: Yes (Other)
  Sender: FDA-Public Use
  Company Number: US-PFIZER INC-PV202300141319

PATIENT
  Age: 44 Year
  Sex: Female

DRUGS (1)
  1. ZIRABEV [Suspect]
     Active Substance: BEVACIZUMAB-BVZR
     Dosage: UNK

REACTIONS (5)
  - Colon cancer [Unknown]
  - Gait disturbance [Unknown]
  - Dysstasia [Unknown]
  - Cancer fatigue [Unknown]
  - Asthenia [Unknown]
